FAERS Safety Report 20131294 (Version 1)
Quarter: 2021Q4

REPORT INFORMATION
  Report Type: Spontaneous
  Country: US (occurrence: US)
  Receive Date: 20211130
  Receipt Date: 20211130
  Transmission Date: 20220303
  Serious: No
  Sender: FDA-Public Use
  Company Number: US-GLAXOSMITHKLINE-USCH2021084982

PATIENT
  Sex: Female

DRUGS (1)
  1. ALLI [Suspect]
     Active Substance: ORLISTAT
     Indication: Product used for unknown indication
     Dosage: UNK

REACTIONS (4)
  - Pruritus [Recovered/Resolved]
  - Hypersensitivity [Unknown]
  - Rash [Recovering/Resolving]
  - Therapeutic response unexpected [Unknown]
